FAERS Safety Report 23099289 (Version 1)
Quarter: 2023Q4

REPORT INFORMATION
  Report Type: Spontaneous
  Country: US (occurrence: US)
  Receive Date: 20231024
  Receipt Date: 20231024
  Transmission Date: 20240110
  Serious: Yes (Other)
  Sender: FDA-Public Use
  Company Number: US-AMGEN-USASP2023184662

PATIENT
  Age: 68 Year
  Sex: Male

DRUGS (1)
  1. LUMAKRAS [Suspect]
     Active Substance: SOTORASIB
     Indication: Non-small cell lung cancer
     Dosage: 960 MILLIGRAM, QD
     Route: 048
     Dates: start: 2023

REACTIONS (2)
  - Haematochezia [Not Recovered/Not Resolved]
  - Haematocrit decreased [Not Recovered/Not Resolved]

NARRATIVE: CASE EVENT DATE: 20231014
